FAERS Safety Report 12501682 (Version 1)
Quarter: 2016Q2

REPORT INFORMATION
  Report Type: Spontaneous
  Country: KR (occurrence: KR)
  Receive Date: 20160627
  Receipt Date: 20160627
  Transmission Date: 20160815
  Serious: Yes (Hospitalization, Other)
  Sender: FDA-Public Use
  Company Number: KR-WATSON-2016-14087

PATIENT
  Age: 47 Year
  Sex: Female

DRUGS (1)
  1. ALLOPURINOL (UNKNOWN) [Suspect]
     Active Substance: ALLOPURINOL
     Indication: PRODUCT USED FOR UNKNOWN INDICATION
     Dosage: UNK
     Route: 065

REACTIONS (3)
  - Conjunctival hyperaemia [Recovered/Resolved]
  - Inflammation [Recovered/Resolved]
  - Stevens-Johnson syndrome [Recovered/Resolved]
